FAERS Safety Report 7710900-2 (Version None)
Quarter: 2011Q3

REPORT INFORMATION
  Report Type: 
  Country: None (occurrence: None)
  Receive Date: 20110825
  Receipt Date: 20110812
  Transmission Date: 20111222
  Serious: Yes (Other)
  Sender: FDA-Public Use
  Company Number: KR-GENENTECH-323285

PATIENT
  Age: 83 Year
  Sex: Male

DRUGS (2)
  1. VERTEPORFIN [Suspect]
     Indication: POLYPOIDAL CHOROIDAL VASCULOPATHY
  2. LUCENTIS [Suspect]
     Indication: POLYPOIDAL CHOROIDAL VASCULOPATHY
     Dosage: 0.5 MG, UNK
     Route: 031

REACTIONS (1)
  - POLYPOIDAL CHOROIDAL VASCULOPATHY [None]
